FAERS Safety Report 8791449 (Version 1)
Quarter: 2012Q4

REPORT INFORMATION
  Report Type: Spontaneous
  Country: US (occurrence: None)
  Receive Date: 20120914
  Receipt Date: 20120914
  Transmission Date: 20130627
  Serious: No
  Sender: FDA-Public Use
  Company Number: None

PATIENT
  Age: 58 Year
  Sex: Female
  Weight: 81.65 kg

DRUGS (3)
  1. DEPAKOTE [Suspect]
     Indication: DEPRESSION
     Route: 048
     Dates: start: 20120629, end: 20120824
  2. ABILIFY [Concomitant]
  3. AMLODOPINE [Concomitant]

REACTIONS (1)
  - Oedema peripheral [None]
